FAERS Safety Report 16780700 (Version 1)
Quarter: 2019Q3

REPORT INFORMATION
  Report Type: Spontaneous
  Country: US (occurrence: US)
  Receive Date: 20190717
  Receipt Date: 20190717
  Transmission Date: 20191005
  Serious: No
  Sender: FDA-Public Use
  Company Number: None

PATIENT
  Age: 74 Year
  Sex: Female

DRUGS (2)
  1. FORTEO [Suspect]
     Active Substance: TERIPARATIDE
     Indication: OSTEOPOROSIS
     Route: 058
     Dates: start: 201809
  2. FORTEO [Suspect]
     Active Substance: TERIPARATIDE
     Indication: PSORIASIS

REACTIONS (3)
  - Syncope [None]
  - Blood sodium decreased [None]
  - Unresponsive to stimuli [None]
